FAERS Safety Report 13070591 (Version 1)
Quarter: 2016Q4

REPORT INFORMATION
  Report Type: Spontaneous
  Country: US (occurrence: US)
  Receive Date: 20161229
  Receipt Date: 20161229
  Transmission Date: 20170207
  Serious: No
  Sender: FDA-Public Use
  Company Number: US-CELGENEUS-USA-2016126375

PATIENT
  Age: 36 Year
  Sex: Male

DRUGS (3)
  1. OTEZLA [Suspect]
     Active Substance: APREMILAST
     Indication: PRODUCT USED FOR UNKNOWN INDICATION
     Route: 048
     Dates: start: 201604, end: 201607
  2. HUMIRA [Suspect]
     Active Substance: ADALIMUMAB
     Dosage: 2.8571 MILLIGRAM
     Route: 058
     Dates: start: 201607
  3. HUMIRA [Suspect]
     Active Substance: ADALIMUMAB
     Indication: PSORIASIS
     Dosage: 2.8571 MILLIGRAM
     Route: 058
     Dates: start: 201502

REACTIONS (6)
  - Alcohol abuse [Recovering/Resolving]
  - Back disorder [Recovering/Resolving]
  - Emotional disorder [Recovering/Resolving]
  - Hepatic enzyme increased [Recovering/Resolving]
  - Wrong technique in product usage process [Unknown]
  - Drug effect delayed [Unknown]

NARRATIVE: CASE EVENT DATE: 201604
